FAERS Safety Report 6107389-6 (Version None)
Quarter: 2009Q1

REPORT INFORMATION
  Report Type: 
  Country: None (occurrence: None)
  Receive Date: 20090309
  Receipt Date: 20090302
  Transmission Date: 20090719
  Serious: Yes (Hospitalization)
  Sender: FDA-Public Use
  Company Number: UA-BRISTOL-MYERS SQUIBB COMPANY-14527170

PATIENT
  Age: 66 Year
  Sex: Male

DRUGS (4)
  1. BLINDED: IPILIMUMAB [Suspect]
     Indication: LUNG NEOPLASM MALIGNANT
     Dosage: INITIALLY ON 20AUG08
     Route: 042
     Dates: start: 20081204, end: 20081204
  2. TAXOL [Suspect]
     Indication: LUNG NEOPLASM MALIGNANT
     Dosage: INITIALLY ON 20AUG08
     Route: 042
     Dates: start: 20081204, end: 20081204
  3. PARAPLATIN [Suspect]
     Indication: LUNG NEOPLASM MALIGNANT
     Dosage: 1DF-AUC 6 .INITIALLY ON 20AUG08
     Route: 042
     Dates: start: 20081204, end: 20081204
  4. BLINDED: PLACEBO [Suspect]
     Indication: LUNG NEOPLASM MALIGNANT
     Dosage: INITIALLY ON 20AUG08
     Route: 042
     Dates: start: 20081204, end: 20081204

REACTIONS (1)
  - ISCHAEMIC NEUROPATHY [None]
